FAERS Safety Report 9720879 (Version 6)
Quarter: 2014Q4

REPORT INFORMATION
  Report Type: Spontaneous
  Country: US (occurrence: US)
  Receive Date: 20131129
  Receipt Date: 20141028
  Transmission Date: 20150529
  Serious: Yes (Hospitalization, Other)
  Sender: FDA-Public Use
  Company Number: US-009507513-1311USA011289

PATIENT
  Sex: Female
  Weight: 58.5 kg

DRUGS (4)
  1. ALENDRONATE SODIUM. [Suspect]
     Active Substance: ALENDRONATE SODIUM
     Indication: OSTEOPOROSIS
     Dosage: 70 MG, UNK
     Route: 048
     Dates: start: 200809, end: 2010
  2. FOSAMAX [Suspect]
     Active Substance: ALENDRONATE SODIUM
     Indication: OSTEOPOROSIS
     Dosage: 10 MG, UNK
     Route: 048
     Dates: start: 199510, end: 200107
  3. FOSAMAX [Suspect]
     Active Substance: ALENDRONATE SODIUM
     Dosage: 70 MG, UNK
     Route: 048
     Dates: start: 20010705, end: 200809
  4. CORTICOSTEROIDS (UNSPECIFIED) [Concomitant]
     Active Substance: UNSPECIFIED INGREDIENT
     Dosage: UNK
     Dates: start: 1985, end: 2010

REACTIONS (22)
  - Femur fracture [Recovered/Resolved]
  - Upper limb fracture [Unknown]
  - Osteopenia [Unknown]
  - Limb operation [Unknown]
  - Intramedullary rod insertion [Unknown]
  - Femur fracture [Unknown]
  - Dental implantation [Unknown]
  - Intervertebral disc degeneration [Unknown]
  - Blood cholesterol abnormal [Unknown]
  - Blood parathyroid hormone increased [Unknown]
  - Vitamin D deficiency [Unknown]
  - Tooth extraction [Unknown]
  - Hypertension [Unknown]
  - Anxiety [Unknown]
  - Palpitations [Unknown]
  - Vascular calcification [Unknown]
  - Joint dislocation [Unknown]
  - Calcium deficiency [Unknown]
  - Bursitis [Unknown]
  - Sacroiliitis [Unknown]
  - Gastrooesophageal reflux disease [Unknown]
  - Nephrolithiasis [Unknown]

NARRATIVE: CASE EVENT DATE: 200301
